FAERS Safety Report 16146822 (Version 4)
Quarter: 2025Q4

REPORT INFORMATION
  Report Type: Spontaneous
  Country: US (occurrence: US)
  Receive Date: 20190402
  Receipt Date: 20251029
  Transmission Date: 20260118
  Serious: No
  Sender: TAKEDA
  Company Number: AE-002425

PATIENT
  Age: 65 Year
  Sex: Female
  Weight: 42 kg

DRUGS (7)
  1. AGRYLIN [Suspect]
     Active Substance: ANAGRELIDE HYDROCHLORIDE
     Indication: Platelet count increased
     Dosage: UNK UNK, TID
  2. AGRYLIN [Suspect]
     Active Substance: ANAGRELIDE HYDROCHLORIDE
     Dosage: 0.5 MILLIGRAM, BID
     Dates: start: 1993
  3. AGRYLIN [Suspect]
     Active Substance: ANAGRELIDE HYDROCHLORIDE
     Dosage: UNK
  4. AGRYLIN [Suspect]
     Active Substance: ANAGRELIDE HYDROCHLORIDE
     Dosage: UNK
  5. AGRYLIN [Suspect]
     Active Substance: ANAGRELIDE HYDROCHLORIDE
     Dosage: UNK
  6. ANAGRELIDE [Suspect]
     Active Substance: ANAGRELIDE
     Indication: Platelet count increased
     Dosage: UNK
  7. METOPROLOL [Concomitant]
     Active Substance: METOPROLOL
     Indication: Heart rate increased
     Dosage: UNK

REACTIONS (11)
  - Skin disorder [Unknown]
  - Platelet count increased [Unknown]
  - Expired product administered [Unknown]
  - Off label use [Unknown]
  - Product quality issue [Unknown]
  - Product physical issue [Unknown]
  - Physical product label issue [Unknown]
  - Heart rate abnormal [Unknown]
  - Malaise [Unknown]
  - Heart rate increased [Unknown]
  - Hypoaesthesia [Unknown]
